FAERS Safety Report 6371715-3 (Version None)
Quarter: 2009Q3

REPORT INFORMATION
  Report Type: 
  Country: None (occurrence: None)
  Receive Date: 20090923
  Receipt Date: 20090917
  Transmission Date: 20100115
  Serious: No
  Sender: FDA-Public Use
  Company Number: HQWYE315701DEC03

PATIENT
  Sex: Male
  Weight: 58 kg

DRUGS (1)
  1. BENEFIX [Suspect]
     Indication: FACTOR IX DEFICIENCY
     Dosage: 50 - 68 U/KG ON DEMAND
     Route: 042
     Dates: start: 20020826, end: 20040115

REACTIONS (1)
  - COAGULATION FACTOR IX LEVEL DECREASED [None]
